FAERS Safety Report 6448171-X (Version None)
Quarter: 2009Q4

REPORT INFORMATION
  Report Type: 
  Country: None (occurrence: None)
  Receive Date: 20091120
  Receipt Date: 20090821
  Transmission Date: 20100525
  Serious: No
  Sender: FDA-Public Use
  Company Number: US-BAYER-200930840NA

PATIENT
  Age: 66 Year
  Sex: Female
  Weight: 69 kg

DRUGS (3)
  1. ULTRAVIST 300 [Suspect]
     Indication: COMPUTERISED TOMOGRAM
     Dosage: POWER INJECTOR AND WARMER
     Route: 042
     Dates: start: 20090821, end: 20090821
  2. ATENOLOL [Concomitant]
  3. READI-CAT 2 BARIUM [Concomitant]
     Route: 048
     Dates: start: 20090821, end: 20090821

REACTIONS (1)
  - BLOOD PRESSURE DECREASED [None]
